FAERS Safety Report 7572858-9 (Version None)
Quarter: 2011Q2

REPORT INFORMATION
  Report Type: 
  Country: None (occurrence: None)
  Receive Date: 20110627
  Receipt Date: 20110614
  Transmission Date: 20111010
  Serious: Yes (Other)
  Sender: FDA-Public Use
  Company Number: US-ELI_LILLY_AND_COMPANY-US201106005902

PATIENT
  Sex: Female

DRUGS (3)
  1. IBUPROFEN [Concomitant]
  2. CYMBALTA [Suspect]
     Indication: NEUROPATHY PERIPHERAL
     Dosage: 60 MG, QD
  3. ASPIRIN [Concomitant]

REACTIONS (6)
  - ABASIA [None]
  - OSTEOPOROSIS [None]
  - NEURALGIA [None]
  - NEOPLASM MALIGNANT [None]
  - HYSTERECTOMY [None]
  - OFF LABEL USE [None]
